FAERS Safety Report 7972893-2 (Version None)
Quarter: 2011Q4

REPORT INFORMATION
  Report Type: 
  Country: None (occurrence: None)
  Receive Date: 20111213
  Receipt Date: 20110810
  Transmission Date: 20120403
  Serious: No
  Sender: FDA-Public Use
  Company Number: US-MYLANLABS-2011S1016939

PATIENT
  Age: 43 Year
  Sex: Female

DRUGS (10)
  1. DOXYCYCLINE [Suspect]
     Route: 048
  2. ZYRTEC [Concomitant]
     Indication: HYPERSENSITIVITY
  3. MULTI-VITAMIN [Concomitant]
  4. OMEGA 3 /00931501/ [Concomitant]
  5. CLARITIN /00917501/ [Concomitant]
     Indication: HYPERSENSITIVITY
  6. FINACEA [Concomitant]
  7. ESTROGEN SUPPLEMENT [Concomitant]
  8. KLARON [Concomitant]
     Route: 061
  9. COREG [Concomitant]
     Indication: CARDIAC DISORDER
     Dates: start: 20070101
  10. PROBIOTIC [Concomitant]

REACTIONS (2)
  - VOMITING [None]
  - MALAISE [None]
